FAERS Safety Report 8052015-2 (Version None)
Quarter: 2012Q1

REPORT INFORMATION
  Report Type: 
  Country: None (occurrence: None)
  Receive Date: 20120118
  Receipt Date: 20120109
  Transmission Date: 20120608
  Serious: Yes (Hospitalization)
  Sender: FDA-Public Use
  Company Number: US-BAYER-2010-002594

PATIENT
  Age: 46 Year
  Sex: Female
  Weight: 79.365 kg

DRUGS (2)
  1. ACETAMINOPHEN [Concomitant]
     Dosage: 500 MG, UNK
     Route: 048
  2. YAZ [Suspect]
     Dosage: UNK
     Route: 048
     Dates: start: 20060612, end: 20060901

REACTIONS (1)
  - CHOLELITHIASIS [None]
